FAERS Safety Report 8284822-5 (Version None)
Quarter: 2012Q2

REPORT INFORMATION
  Report Type: 
  Country: None (occurrence: None)
  Receive Date: 20120413
  Receipt Date: 20110324
  Transmission Date: 20120825
  Serious: No
  Sender: FDA-Public Use
  Company Number: US-ASTRAZENECA-2010SE53784

PATIENT
  Age: 74 Year
  Sex: Female

DRUGS (4)
  1. HYDROCODONE BITARTRATE [Suspect]
  2. NEXIUM [Suspect]
     Route: 048
  3. PRILOSEC [Suspect]
     Route: 048
  4. RHINOCORT [Suspect]

REACTIONS (5)
  - ABDOMINAL DISCOMFORT [None]
  - PEPTIC ULCER [None]
  - DRUG DOSE OMISSION [None]
  - DIABETES MELLITUS [None]
  - NAUSEA [None]
